FAERS Safety Report 15919091 (Version 1)
Quarter: 2019Q1

REPORT INFORMATION
  Report Type: Spontaneous
  Country: CN (occurrence: CN)
  Receive Date: 20190205
  Receipt Date: 20190205
  Transmission Date: 20190417
  Serious: Yes (Other)
  Sender: FDA-Public Use
  Company Number: CN-PFIZER INC-2019039214

PATIENT
  Age: 54 Year
  Sex: Female
  Weight: 63 kg

DRUGS (2)
  1. SOLU-MEDROL [Suspect]
     Active Substance: METHYLPREDNISOLONE SODIUM SUCCINATE
     Indication: INFECTION
     Dosage: 40 MG, 1X/DAY
     Route: 041
     Dates: start: 20181110, end: 20181114
  2. NING TAI BAO [Concomitant]
     Indication: NUTRITIONAL SUPPLEMENTATION
     Dosage: 0.5 MG, UNK (3 TIMES/WEEK)
     Dates: start: 20181109, end: 20181116

REACTIONS (3)
  - Nausea [Recovering/Resolving]
  - Stress ulcer [Recovering/Resolving]
  - Abdominal pain [Recovering/Resolving]

NARRATIVE: CASE EVENT DATE: 20181113
